FAERS Safety Report 9240954 (Version 1)
Quarter: 2013Q2

REPORT INFORMATION
  Report Type: Spontaneous
  Country: FR (occurrence: FR)
  Receive Date: 20130419
  Receipt Date: 20130419
  Transmission Date: 20140414
  Serious: Yes (Other)
  Sender: FDA-Public Use
  Company Number: FR-BAYER-2013-047135

PATIENT
  Age: 54 Year
  Sex: Female

DRUGS (2)
  1. MIRENA [Suspect]
     Dosage: 20 MCG/24HR, CONT
     Route: 015
     Dates: end: 20130107
  2. LIVIAL [Suspect]
     Dosage: 2.5 MG, UNK
     Route: 048
     Dates: start: 20101010, end: 20130208

REACTIONS (1)
  - Intraductal proliferative breast lesion [Not Recovered/Not Resolved]
